FAERS Safety Report 5639110-X (Version None)
Quarter: 2008Q1

REPORT INFORMATION
  Report Type: 
  Country: None (occurrence: None)
  Receive Date: 20080226
  Receipt Date: 20080213
  Transmission Date: 20080703
  Serious: Yes (Death)
  Sender: FDA-Public Use
  Company Number: US-ELI_LILLY_AND_COMPANY-US200802003643

PATIENT
  Age: 53 Year
  Sex: Female

DRUGS (5)
  1. CYMBALTA [Suspect]
     Dosage: 1 D/F, UNK
  2. RISPERIDONE [Concomitant]
  3. LAMOTRIGINE [Concomitant]
     Dosage: 1 D/F, UNK
  4. CLONAZEPAM [Concomitant]
     Dosage: 1 D/F, UNK
  5. ZOLPIDEM [Concomitant]
     Dosage: 1 D/F, UNK

REACTIONS (1)
  - DEATH [None]
